FAERS Safety Report 20751855 (Version 6)
Quarter: 2022Q3

REPORT INFORMATION
  Report Type: Report from Study
  Country: NL (occurrence: None)
  Receive Date: 20220426
  Receipt Date: 20220811
  Transmission Date: 20221027
  Serious: Yes (Hospitalization)
  Sender: FDA-Public Use
  Company Number: NL-ROCHE-3081320

PATIENT
  Age: 70 Year
  Sex: Female
  Weight: 61.9 kg

DRUGS (10)
  1. INVESTIGATIONAL PRODUCT [Suspect]
     Active Substance: INVESTIGATIONAL PRODUCT
     Indication: Metastatic neoplasm
     Dosage: ON 11/APR/2022, FROM 05:02 PM TO 06:04 PM, SHE RECEIVED MOST RECENT DOSE 3 MG STUDY DRUG PRIOR TO AE
     Route: 042
     Dates: start: 20220407
  2. ATEZOLIZUMAB [Suspect]
     Active Substance: ATEZOLIZUMAB
     Indication: Metastatic neoplasm
     Dosage: ON 07/APR/2022, AT 01:17 PM SHE RECEIVED MOST RECENT DOSE 1200 MG OF STUDY DRUG PRIOR TO AE/SAE.
     Route: 042
     Dates: start: 20220407
  3. DESLORATADINE [Concomitant]
     Active Substance: DESLORATADINE
     Indication: Rash maculo-papular
     Route: 048
     Dates: start: 20220411, end: 20220412
  4. DESLORATADINE [Concomitant]
     Active Substance: DESLORATADINE
     Indication: Cytokine release syndrome
     Route: 048
     Dates: start: 20220411, end: 20220419
  5. HYDROCORTISONE [Concomitant]
     Active Substance: HYDROCORTISONE
     Indication: Rash maculo-papular
     Route: 061
     Dates: start: 20220412, end: 20220502
  6. HYDROCORTISONE [Concomitant]
     Active Substance: HYDROCORTISONE
     Indication: Cytokine release syndrome
  7. SODIUM CHLORIDE [Concomitant]
     Active Substance: SODIUM CHLORIDE
     Indication: Cytokine release syndrome
     Route: 042
     Dates: start: 20220411, end: 20220411
  8. FLUTICASONE [Concomitant]
     Active Substance: FLUTICASONE
     Indication: Cytokine release syndrome
     Route: 061
     Dates: start: 20220415, end: 20220419
  9. ACETAMINOPHEN [Concomitant]
     Active Substance: ACETAMINOPHEN
     Indication: Cytokine release syndrome
     Route: 042
     Dates: start: 20220411, end: 20220412
  10. ACETAMINOPHEN [Concomitant]
     Active Substance: ACETAMINOPHEN
     Route: 048
     Dates: start: 20220412, end: 20220419

REACTIONS (1)
  - Immune-mediated pancreatitis [Recovered/Resolved]

NARRATIVE: CASE EVENT DATE: 20220414
